FAERS Safety Report 9771139 (Version 5)
Quarter: 2014Q2

REPORT INFORMATION
  Report Type: Spontaneous
  Country: US (occurrence: US)
  Receive Date: 20131218
  Receipt Date: 20140507
  Transmission Date: 20141212
  Serious: No
  Sender: FDA-Public Use
  Company Number: US-PFIZER INC-2013362409

PATIENT
  Age: 60 Year
  Sex: Male

DRUGS (10)
  1. CELEBREX [Suspect]
     Dosage: 200 MG, 1X/DAY
  2. LYRICA [Concomitant]
     Dosage: 200 MG, 3X/DAY (1 TID)
  3. NTG [Concomitant]
     Dosage: UNK
  4. SOMA [Concomitant]
     Dosage: UNK
  5. ASA [Concomitant]
     Dosage: 81 MG, UNK
  6. PERCOCET [Concomitant]
     Dosage: UNK
  7. METOPROLOL [Concomitant]
     Dosage: UNK
  8. FOLIC ACID [Concomitant]
     Dosage: UNK
  9. ISMO [Concomitant]
     Dosage: UNK
  10. B12 [Concomitant]
     Dosage: UNK

REACTIONS (1)
  - Back pain [Unknown]
